FAERS Safety Report 9429368 (Version 1)
Quarter: 2013Q3

REPORT INFORMATION
  Report Type: Spontaneous
  Country: US (occurrence: US)
  Receive Date: 20130730
  Receipt Date: 20130730
  Transmission Date: 20140515
  Serious: No
  Sender: FDA-Public Use
  Company Number: US-ABBOTT-13P-163-1053686-00

PATIENT
  Sex: 0

DRUGS (2)
  1. NIASPAN (COATED) [Suspect]
     Indication: PRODUCT USED FOR UNKNOWN INDICATION
     Dates: start: 201212, end: 201301
  2. NIASPAN (COATED) [Suspect]
     Dates: start: 201301

REACTIONS (1)
  - Lipids abnormal [Unknown]
